FAERS Safety Report 13428130 (Version 4)
Quarter: 2017Q3

REPORT INFORMATION
  Report Type: Report from Study
  Country: US (occurrence: US)
  Receive Date: 20170411
  Receipt Date: 20170720
  Transmission Date: 20171127
  Serious: No
  Sender: FDA-Public Use
  Company Number: PHEH2017US010253

PATIENT
  Age: 35 Year
  Sex: Female

DRUGS (2)
  1. GILENYA [Suspect]
     Active Substance: FINGOLIMOD HYDROCHLORIDE
     Dosage: UNK
     Route: 065
     Dates: start: 20170501
  2. GILENYA [Suspect]
     Active Substance: FINGOLIMOD HYDROCHLORIDE
     Indication: MULTIPLE SCLEROSIS
     Dosage: 0.5 MG, QD
     Route: 048
     Dates: end: 20160401

REACTIONS (6)
  - Normal newborn [Unknown]
  - Prolonged labour [Unknown]
  - Urinary tract infection [Not Recovered/Not Resolved]
  - Maternal exposure before pregnancy [Unknown]
  - Asthenia [Unknown]
  - Delivery [Unknown]

NARRATIVE: CASE EVENT DATE: 20170317
